APPROVED DRUG PRODUCT: HYDROMORPHONE HYDROCHLORIDE
Active Ingredient: HYDROMORPHONE HYDROCHLORIDE
Strength: 40MG/20ML (2MG/ML)
Dosage Form/Route: SOLUTION;INTRAMUSCULAR, INTRAVENOUS, SUBCUTANEOUS
Application: N217812 | Product #001
Applicant: HIKMA PHARMACEUTICALS USA INC
Approved: Dec 14, 2023 | RLD: Yes | RS: Yes | Type: RX